FAERS Safety Report 24301319 (Version 2)
Quarter: 2024Q3

REPORT INFORMATION
  Report Type: Spontaneous
  Country: US (occurrence: US)
  Receive Date: 20240910
  Receipt Date: 20240924
  Transmission Date: 20241017
  Serious: Yes (Hospitalization, Other)
  Sender: SANDOZ
  Company Number: US-SANDOZ-SDZ2024US078522

PATIENT
  Age: 45 Year
  Sex: Male
  Weight: 85.1 kg

DRUGS (10)
  1. CYCLOPHOSPHAMIDE [Suspect]
     Active Substance: CYCLOPHOSPHAMIDE
     Indication: Colorectal cancer
     Dosage: 500 MG/M2, QD
     Route: 042
     Dates: start: 20240716, end: 20240718
  2. CYCLOPHOSPHAMIDE [Suspect]
     Active Substance: CYCLOPHOSPHAMIDE
     Indication: Lymphodepletion
  3. FLUDARABINE [Suspect]
     Active Substance: FLUDARABINE PHOSPHATE
     Indication: Colorectal cancer
     Dosage: 25 MG/M2, QD
     Route: 042
     Dates: start: 20240715, end: 20240719
  4. FLUDARABINE [Suspect]
     Active Substance: FLUDARABINE PHOSPHATE
     Indication: Lymphodepletion
  5. CYCLOPHOSPHAMIDE [Concomitant]
     Active Substance: CYCLOPHOSPHAMIDE
     Indication: Colorectal cancer
     Dosage: 500 MG/M2, QD
     Route: 042
     Dates: start: 20240716, end: 20240718
  6. CYCLOPHOSPHAMIDE [Concomitant]
     Active Substance: CYCLOPHOSPHAMIDE
     Indication: Lymphodepletion
  7. FLUDARABINE [Concomitant]
     Active Substance: FLUDARABINE PHOSPHATE
     Indication: Colorectal cancer
     Dosage: 25 MG/M2, QD
     Route: 042
     Dates: start: 20240715, end: 20240719
  8. FLUDARABINE [Concomitant]
     Active Substance: FLUDARABINE PHOSPHATE
     Indication: Lymphodepletion
  9. ALDESLEUKIN [Concomitant]
     Active Substance: ALDESLEUKIN
     Indication: Colorectal cancer
     Dosage: 6 UNK,6 MILLION IU
     Route: 058
     Dates: start: 20240729, end: 20240729
  10. ALDESLEUKIN [Concomitant]
     Active Substance: ALDESLEUKIN
     Indication: Lymphodepletion

REACTIONS (2)
  - Hepatic failure [Not Recovered/Not Resolved]
  - Thrombocytopenia [Not Recovered/Not Resolved]
